FAERS Safety Report 16765994 (Version 1)
Quarter: 2019Q3

REPORT INFORMATION
  Report Type: Spontaneous
  Country: AU (occurrence: AU)
  Receive Date: 20190903
  Receipt Date: 20190903
  Transmission Date: 20191005
  Serious: Yes (Hospitalization, Other)
  Sender: FDA-Public Use
  Company Number: AU-SA-2019SA239844

PATIENT
  Age: 19 Year
  Sex: Female

DRUGS (11)
  1. APO-TRAMADOL [Concomitant]
     Active Substance: TRAMADOL
     Indication: PAIN MANAGEMENT
  2. MYAMBUTOL [Concomitant]
     Active Substance: ETHAMBUTOL HYDROCHLORIDE
     Indication: BONE TUBERCULOSIS
     Dosage: UNK
     Route: 048
     Dates: start: 20190301, end: 20190416
  3. PANAMAX [PARACETAMOL] [Concomitant]
     Indication: PAIN MANAGEMENT
     Dosage: UNK
     Route: 048
     Dates: start: 20190301, end: 20190416
  4. PYRAZINAMIDE. [Suspect]
     Active Substance: PYRAZINAMIDE
     Indication: BONE TUBERCULOSIS
     Dosage: UNK
     Route: 048
     Dates: start: 20190301, end: 20190416
  5. PANAFCORTELONE [Concomitant]
     Active Substance: PREDNISOLONE
     Indication: IMMUNE RECONSTITUTION INFLAMMATORY SYNDROME
     Dosage: UNK
     Route: 048
     Dates: start: 20190301, end: 20190415
  6. RIFADIN [Suspect]
     Active Substance: RIFAMPIN
     Indication: BONE TUBERCULOSIS
     Dosage: UNK
     Route: 048
     Dates: start: 20190301, end: 20190416
  7. RESPRIM [Concomitant]
     Active Substance: SULFAMETHOXAZOLE\TRIMETHOPRIM
     Indication: ANTIFUNGAL PROPHYLAXIS
     Dosage: UNK
     Route: 048
     Dates: start: 20190314, end: 20190415
  8. PYRIDOXINE HYDROCHLORIDE. [Concomitant]
     Active Substance: PYRIDOXINE HYDROCHLORIDE
     Indication: TUBERCULOSIS OF CENTRAL NERVOUS SYSTEM
     Route: 048
  9. TRUST OSTEO D [Concomitant]
     Dosage: UNK
     Route: 048
     Dates: start: 20190301
  10. ISONIAZID. [Suspect]
     Active Substance: ISONIAZID
     Indication: BONE TUBERCULOSIS
     Dosage: UNK
     Route: 048
     Dates: start: 20190301, end: 20190416
  11. APO-PANTOPRAZOLE [Concomitant]
     Active Substance: PANTOPRAZOLE SODIUM
     Indication: GASTRIC ULCER
     Dosage: UNK
     Route: 048
     Dates: start: 20190301, end: 20190416

REACTIONS (8)
  - Sepsis [Recovering/Resolving]
  - Drug reaction with eosinophilia and systemic symptoms [Recovering/Resolving]
  - Pyrexia [Recovering/Resolving]
  - Liver function test increased [Recovering/Resolving]
  - Lactic acidosis [Recovering/Resolving]
  - Abdominal pain upper [Recovering/Resolving]
  - Abdominal discomfort [Recovering/Resolving]
  - Acute hepatic failure [Recovering/Resolving]

NARRATIVE: CASE EVENT DATE: 20190416
